FAERS Safety Report 10701034 (Version 1)
Quarter: 2015Q1

REPORT INFORMATION
  Report Type: Spontaneous
  Country: ES (occurrence: ES)
  Receive Date: 20150109
  Receipt Date: 20150109
  Transmission Date: 20150721
  Serious: Yes (Hospitalization)
  Sender: FDA-Public Use
  Company Number: ES-ASTRAZENECA-2015SE00858

PATIENT
  Age: 74 Year
  Sex: Female

DRUGS (1)
  1. BRILIQUE [Suspect]
     Active Substance: TICAGRELOR
     Indication: ACUTE CORONARY SYNDROME
     Route: 048
     Dates: start: 20140827, end: 20141212

REACTIONS (7)
  - Arrhythmia [Recovered/Resolved]
  - Dyspnoea exertional [Recovered/Resolved]
  - Syncope [Unknown]
  - Bradycardia [Unknown]
  - Arthritis [Recovered/Resolved]
  - Dyspnoea at rest [Recovered/Resolved]
  - Diarrhoea [Recovered/Resolved]

NARRATIVE: CASE EVENT DATE: 20140829
